FAERS Safety Report 6793560-7 (Version None)
Quarter: 2010Q2

REPORT INFORMATION
  Report Type: 
  Country: None (occurrence: None)
  Receive Date: 20100624
  Receipt Date: 20081211
  Transmission Date: 20101027
  Serious: No
  Sender: FDA-Public Use
  Company Number: US-PFIZER INC-2008098077

PATIENT
  Sex: Female
  Weight: 77.272 kg

DRUGS (4)
  1. XALATAN [Suspect]
     Indication: GLAUCOMA
     Dosage: 1 GTT, 1X/DAY
     Route: 047
     Dates: start: 20080808, end: 20081128
  2. XALATAN [Suspect]
     Dates: start: 20080808, end: 20081128
  3. AMLODIPINE [Concomitant]
  4. QUINAPRIL [Concomitant]

REACTIONS (2)
  - CONJUNCTIVAL HYPERAEMIA [None]
  - HYPERSENSITIVITY [None]
